FAERS Safety Report 9728664 (Version 2)
Quarter: 2013Q4

REPORT INFORMATION
  Report Type: Spontaneous
  Country: US (occurrence: US)
  Receive Date: 20131204
  Receipt Date: 20131218
  Transmission Date: 20140711
  Serious: No
  Sender: FDA-Public Use
  Company Number: US-PFIZER INC-2013345763

PATIENT
  Age: 54 Year
  Sex: Female
  Weight: 100 kg

DRUGS (3)
  1. CHANTIX [Suspect]
     Indication: SMOKING CESSATION THERAPY
     Dosage: 0.5 MG, DAILY
     Dates: start: 201311, end: 20131202
  2. NOVOLOG [Concomitant]
     Indication: DIABETES MELLITUS
     Dosage: 30 IU, 3X/DAY
  3. LANTUS [Concomitant]
     Indication: DIABETES MELLITUS
     Dosage: 90 IU, 1X/DAY

REACTIONS (2)
  - Abnormal dreams [Unknown]
  - Pruritus [Unknown]
